FAERS Safety Report 20491857 (Version 3)
Quarter: 2022Q2

REPORT INFORMATION
  Report Type: Report from Study
  Country: MX (occurrence: MX)
  Receive Date: 20220218
  Receipt Date: 20220617
  Transmission Date: 20220721
  Serious: Yes (Death)
  Sender: FDA-Public Use
  Company Number: MX-NOVARTISPH-NVSC2022MX037676

PATIENT
  Sex: Male

DRUGS (3)
  1. BUDESONIDE [Suspect]
     Active Substance: BUDESONIDE
     Indication: Oxygen therapy
     Dosage: 200 MG
     Route: 065
     Dates: start: 2019
  2. GLYCOPYRROLATE [Suspect]
     Active Substance: GLYCOPYRROLATE
     Indication: Oxygen therapy
     Dosage: 50 UG
     Route: 065
     Dates: start: 2019
  3. INDACATEROL MALEATE [Suspect]
     Active Substance: INDACATEROL MALEATE
     Indication: Oxygen therapy
     Dosage: 150 UG
     Route: 065
     Dates: start: 2019

REACTIONS (2)
  - Respiratory arrest [Fatal]
  - Lung disorder [Fatal]
